FAERS Safety Report 23739142 (Version 2)
Quarter: 2024Q3

REPORT INFORMATION
  Report Type: Report from Study
  Country: US (occurrence: US)
  Receive Date: 20240413
  Receipt Date: 20240925
  Transmission Date: 20241016
  Serious: Yes (Other)
  Sender: ABBVIE
  Company Number: US-ABBVIE-5717483

PATIENT
  Sex: Female

DRUGS (1)
  1. SKYRIZI [Suspect]
     Active Substance: RISANKIZUMAB-RZAA
     Indication: Crohn^s disease
     Route: 042
     Dates: start: 20240223

REACTIONS (8)
  - Loss of consciousness [Unknown]
  - Syncope [Recovered/Resolved]
  - Faeces discoloured [Not Recovered/Not Resolved]
  - Crohn^s disease [Recovering/Resolving]
  - Haematochezia [Unknown]
  - Anxiety [Not Recovered/Not Resolved]
  - Chest discomfort [Unknown]
  - Feeling abnormal [Unknown]

NARRATIVE: CASE EVENT DATE: 20240101
